FAERS Safety Report 4803320-1 (Version None)
Quarter: 2005Q4

REPORT INFORMATION
  Report Type: 
  Country: None (occurrence: None)
  Receive Date: 20051013
  Receipt Date: 20050927
  Transmission Date: 20060501
  Serious: Yes (Hospitalization)
  Sender: FDA-Public Use
  Company Number: US015961

PATIENT
  Age: 51 Year
  Sex: Female
  Weight: 92.9874 kg

DRUGS (7)
  1. GABITRIL [Suspect]
     Indication: MIGRAINE PROPHYLAXIS
     Dosage: 2 MG QD; ORAL
     Route: 048
     Dates: start: 20040801, end: 20050101
  2. GABITRIL [Suspect]
     Indication: MIGRAINE PROPHYLAXIS
     Dosage: 16 MG QD; ORAL
     Route: 048
     Dates: start: 20050101, end: 20050123
  3. GABITRIL [Suspect]
     Indication: MIGRAINE PROPHYLAXIS
     Dosage: 40 MG QD; ORAL
     Route: 048
     Dates: start: 20050124, end: 20050401
  4. GABITRIL [Suspect]
     Indication: MIGRAINE PROPHYLAXIS
     Dosage: 32 MG QD; ORAL
     Route: 048
     Dates: start: 20050401, end: 20050618
  5. GABITRIL [Suspect]
     Indication: MIGRAINE PROPHYLAXIS
     Dosage: 12 MG QD; ORAL
     Route: 048
     Dates: start: 20050619, end: 20050620
  6. LEVOXYL [Concomitant]
  7. MAXALT [Concomitant]

REACTIONS (21)
  - CONVULSION [None]
  - DIZZINESS [None]
  - FALL [None]
  - FOOD ALLERGY [None]
  - FORMICATION [None]
  - HYPERHIDROSIS [None]
  - LOSS OF CONTROL OF LEGS [None]
  - MIGRAINE [None]
  - NAUSEA [None]
  - NECK PAIN [None]
  - NERVOUSNESS [None]
  - PALPITATIONS [None]
  - PARAESTHESIA [None]
  - PARALYSIS [None]
  - PHOTOPHOBIA [None]
  - SPEECH DISORDER [None]
  - TINNITUS [None]
  - TREMOR [None]
  - UNRESPONSIVE TO VERBAL STIMULI [None]
  - VERTIGO [None]
  - WEIGHT DECREASED [None]
